FAERS Safety Report 4371137-0 (Version None)
Quarter: 2004Q2

REPORT INFORMATION
  Report Type: 
  Country: None (occurrence: None)
  Receive Date: 20040601
  Receipt Date: 20040524
  Transmission Date: 20050107
  Serious: Yes (Hospitalization)
  Sender: FDA-Public Use
  Company Number: 2004-05-0798

PATIENT
  Age: 1 Month
  Sex: Male

DRUGS (2)
  1. CELESTONE [Suspect]
     Indication: RHINORRHOEA
     Dosage: 50-30 DROPS ORAL
     Route: 048
     Dates: start: 20040417, end: 20040427
  2. MUCOMYST [Suspect]
     Indication: RHINORRHOEA
     Dosage: BID ORAL
     Route: 048
     Dates: start: 20040417, end: 20040426

REACTIONS (8)
  - ANAEMIA [None]
  - BRONCHITIS [None]
  - DYSPNOEA [None]
  - FATIGUE [None]
  - RESPIRATORY FAILURE [None]
  - RHINORRHOEA [None]
  - WEIGHT DECREASED [None]
  - WHEEZING [None]
